FAERS Safety Report 6420399-4 (Version None)
Quarter: 2009Q4

REPORT INFORMATION
  Report Type: 
  Country: None (occurrence: None)
  Receive Date: 20091029
  Receipt Date: 20091019
  Transmission Date: 20100525
  Serious: No
  Sender: FDA-Public Use
  Company Number: US-ELI_LILLY_AND_COMPANY-US200910004965

PATIENT
  Sex: Male
  Weight: 66.213 kg

DRUGS (11)
  1. PROZAC [Suspect]
     Indication: ATTENTION DEFICIT/HYPERACTIVITY DISORDER
     Dosage: 60 MG, DAILY (1/D)
     Route: 065
     Dates: start: 20040801, end: 20090201
  2. ZYPREXA [Suspect]
     Indication: ATTENTION DEFICIT/HYPERACTIVITY DISORDER
     Dosage: 1.25 MG, UNKNOWN
     Route: 065
     Dates: start: 20090715, end: 20090815
  3. STRATTERA [Suspect]
     Indication: OBSESSIVE-COMPULSIVE DISORDER
     Dosage: UNK, UNKNOWN
     Route: 065
  4. SYMBYAX [Suspect]
     Indication: ATTENTION DEFICIT/HYPERACTIVITY DISORDER
     Dosage: UNK, UNKNOWN
     Route: 065
     Dates: end: 20090815
  5. LUVOX [Concomitant]
  6. KLONOPIN [Concomitant]
  7. LAMICTAL [Concomitant]
  8. ATIVAN [Concomitant]
     Dosage: 0.5 MG, 4/D
  9. ADDERALL XR 10 [Concomitant]
     Dosage: 20 MG, UNK
     Dates: start: 20030709, end: 20031001
  10. ZOLOFT [Concomitant]
     Dates: start: 20030709, end: 20031001
  11. AMINO ACIDS [Concomitant]

REACTIONS (13)
  - ABNORMAL BEHAVIOUR [None]
  - ABNORMAL FAECES [None]
  - ANAEMIA [None]
  - BULIMIA NERVOSA [None]
  - DRUG INTOLERANCE [None]
  - EPISTAXIS [None]
  - GASTROENTERITIS VIRAL [None]
  - GASTROINTESTINAL DISORDER [None]
  - GASTROINTESTINAL PAIN [None]
  - LUNG INFECTION [None]
  - MALABSORPTION [None]
  - OFF LABEL USE [None]
  - WEIGHT DECREASED [None]
